FAERS Safety Report 7602215-8 (Version None)
Quarter: 2011Q3

REPORT INFORMATION
  Report Type: 
  Country: None (occurrence: None)
  Receive Date: 20110711
  Receipt Date: 20110707
  Transmission Date: 20111222
  Serious: Yes (Life-Threatening, Hospitalization, Other)
  Sender: FDA-Public Use
  Company Number: US-ASTRAZENECA-2011SE05659

PATIENT
  Age: 57 Year
  Sex: Female

DRUGS (3)
  1. IBUPROFEN [Concomitant]
     Indication: PAIN
     Route: 048
  2. NEXIUM [Suspect]
     Indication: GASTROOESOPHAGEAL REFLUX DISEASE
     Route: 048
  3. SOTALOL HCL [Concomitant]
     Route: 048
     Dates: start: 20090320

REACTIONS (2)
  - LOSS OF CONSCIOUSNESS [None]
  - ANEURYSM [None]
